FAERS Safety Report 4888289-6 (Version None)
Quarter: 2006Q1

REPORT INFORMATION
  Report Type: 
  Country: None (occurrence: None)
  Receive Date: 20060119
  Receipt Date: 20060119
  Transmission Date: 20060701
  Serious: Yes (Death)
  Sender: FDA-Public Use
  Company Number: None

PATIENT
  Sex: Male
  Weight: 95.2554 kg

DRUGS (1)
  1. CITALOPRAM 20 MG FOREST PHARMACEUTICALS [Suspect]
     Indication: DEPRESSION
     Dosage: 20 MG 1/2 -7 DAYS THEN 1 TABLET ORAL
     Route: 048
     Dates: start: 20051108, end: 20051118

REACTIONS (3)
  - COMPLETED SUICIDE [None]
  - INJURY ASPHYXIATION [None]
  - INTENTIONAL SELF-INJURY [None]
